FAERS Safety Report 6573681-4 (Version None)
Quarter: 2010Q1

REPORT INFORMATION
  Report Type: 
  Country: None (occurrence: None)
  Receive Date: 20100208
  Receipt Date: 20100128
  Transmission Date: 20100710
  Serious: Yes (Hospitalization)
  Sender: FDA-Public Use
  Company Number: JP-SANOFI-AVENTIS-2009SA011226

PATIENT
  Sex: Male
  Weight: 77 kg

DRUGS (25)
  1. OXALIPLATIN [Suspect]
     Indication: RECTAL CANCER
     Route: 041
     Dates: start: 20081029, end: 20081029
  2. OXALIPLATIN [Suspect]
     Route: 041
     Dates: start: 20090126, end: 20090126
  3. CALCIUM LEVOFOLINATE [Suspect]
     Indication: RECTAL CANCER
     Route: 041
     Dates: start: 20081029, end: 20081029
  4. CALCIUM LEVOFOLINATE [Suspect]
     Route: 041
     Dates: start: 20090126, end: 20090126
  5. 5-FU [Suspect]
     Indication: RECTAL CANCER
     Route: 040
     Dates: start: 20081029, end: 20081029
  6. 5-FU [Suspect]
     Route: 041
     Dates: start: 20081029, end: 20081030
  7. 5-FU [Suspect]
     Route: 040
     Dates: start: 20090126, end: 20090126
  8. 5-FU [Suspect]
     Route: 041
     Dates: start: 20090126, end: 20090127
  9. GRANISETRON HYDROCHLORIDE [Concomitant]
     Indication: PREMEDICATION
     Route: 041
     Dates: start: 20081029, end: 20090427
  10. DEXAMETHASONE SODIUM PHOSPHATE [Concomitant]
     Indication: PREMEDICATION
     Route: 041
     Dates: start: 20081029, end: 20090427
  11. BIO THREE [Concomitant]
     Route: 048
     Dates: start: 20080911
  12. FAMOTIDINE [Concomitant]
     Route: 048
     Dates: start: 20080912
  13. LOXOPROFEN SODIUM [Concomitant]
     Route: 048
     Dates: start: 20080915, end: 20091127
  14. REBAMIPIDE [Concomitant]
     Route: 048
     Dates: start: 20080915, end: 20091127
  15. MORPHINE SULFATE [Concomitant]
     Route: 048
     Dates: start: 20080916
  16. FUROSEMIDE [Concomitant]
     Route: 048
     Dates: start: 20080920, end: 20090323
  17. SENNOSIDE A [Concomitant]
     Route: 048
     Dates: start: 20080920
  18. MAGNESIUM OXIDE [Concomitant]
     Route: 048
     Dates: start: 20080920, end: 20090821
  19. BROTIZOLAM [Concomitant]
     Route: 048
     Dates: start: 20090301
  20. CLOTIAZEPAM [Concomitant]
     Indication: INSOMNIA
     Route: 048
     Dates: start: 20090301
  21. RISPERIDONE [Concomitant]
     Route: 048
     Dates: start: 20090501
  22. BIPERIDEN HYDROCHLORIDE [Concomitant]
     Route: 048
     Dates: start: 20090501
  23. OLANZAPINE [Concomitant]
     Route: 048
     Dates: start: 20090501
  24. VALPROATE SODIUM [Concomitant]
     Route: 048
     Dates: start: 20090501
  25. TAMSULOSIN HYDROCHLORIDE [Concomitant]
     Indication: BENIGN PROSTATIC HYPERPLASIA
     Route: 048

REACTIONS (1)
  - MANIA [None]
